FAERS Safety Report 9049197 (Version 2)
Quarter: 2013Q1

REPORT INFORMATION
  Report Type: Spontaneous
  Country: US (occurrence: US)
  Receive Date: 20130205
  Receipt Date: 20130311
  Transmission Date: 20140127
  Serious: No
  Sender: FDA-Public Use
  Company Number: US-PFIZER INC-2013041000

PATIENT
  Age: 42 Year
  Sex: Female

DRUGS (8)
  1. CLINDAMYCIN HCL [Suspect]
     Dosage: UNK
     Route: 048
     Dates: end: 20050222
  2. SEPTRA [Suspect]
  3. OMNICEF [Suspect]
  4. LEVAQUIN [Suspect]
  5. LAMICTAL [Suspect]
  6. BIAXIN [Suspect]
  7. KEFLEX [Suspect]
  8. AMOXIL [Suspect]

REACTIONS (1)
  - Drug hypersensitivity [Recovered/Resolved]
